FAERS Safety Report 24060733 (Version 3)
Quarter: 2024Q3

REPORT INFORMATION
  Report Type: Spontaneous
  Country: IN (occurrence: IN)
  Receive Date: 20240708
  Receipt Date: 20240827
  Transmission Date: 20241017
  Serious: Yes (Other)
  Sender: PFIZER
  Company Number: IN-PFIZER INC-PV202400087790

PATIENT
  Age: 51 Year
  Sex: Male

DRUGS (1)
  1. CRIZOTINIB [Suspect]
     Active Substance: CRIZOTINIB
     Dosage: 250 MG, 2X/DAY
     Route: 048

REACTIONS (10)
  - Lower limb fracture [Unknown]
  - Asthenia [Unknown]
  - Dizziness [Unknown]
  - Feeding disorder [Unknown]
  - Dysphagia [Unknown]
  - Nausea [Unknown]
  - Peripheral swelling [Unknown]
  - Pyrexia [Unknown]
  - Renal disorder [Unknown]
  - Liver disorder [Unknown]

NARRATIVE: CASE EVENT DATE: 20240801
